FAERS Safety Report 26194609 (Version 1)
Quarter: 2025Q4

REPORT INFORMATION
  Report Type: Spontaneous
  Country: US (occurrence: US)
  Receive Date: 20251224
  Receipt Date: 20251224
  Transmission Date: 20260118
  Serious: No
  Sender: ALEXION PHARMACEUTICALS
  Company Number: US-AstraZeneca-CH-01015874A

PATIENT
  Sex: Male

DRUGS (1)
  1. BREZTRI [Suspect]
     Active Substance: BUDESONIDE\FORMOTEROL\GLYCOPYRROLATE
     Route: 065

REACTIONS (9)
  - Malaise [Unknown]
  - Intentional product use issue [Unknown]
  - Urine output decreased [Unknown]
  - Renal pain [Unknown]
  - Drug ineffective [Unknown]
  - Dyspnoea [Unknown]
  - Pain [Unknown]
  - Feeling abnormal [Unknown]
  - Chromaturia [Unknown]
